FAERS Safety Report 7549196 (Version 8)
Quarter: 2012Q4

REPORT INFORMATION
  Report Type: 
  Country: CA (occurrence: CA)
  Receive Date: 20100821
  Receipt Date: 20121107
  Transmission Date: 20130627
  Serious: Yes (Hospitalization)
  Sender: FDA-Public Use
  Company Number: PHHY2010CA48239

PATIENT
  Sex: Female

DRUGS (8)
  1. SANDOSTATIN LAR [Suspect]
     Indication: ACROMEGALY
     Dosage: 20 mg once a month
     Route: 030
     Dates: start: 20050524
  2. SANDOSTATIN LAR [Suspect]
     Dosage: 20 mg, Every 4 weeks
     Route: 030
  3. CALCIUM [Concomitant]
  4. VITAMIN D [Concomitant]
  5. VITAMIN B12 [Concomitant]
  6. ALENDRONATE [Concomitant]
  7. AMIODARONE [Concomitant]
  8. WARFARIN [Concomitant]

REACTIONS (12)
  - Upper limb fracture [Unknown]
  - Fall [Unknown]
  - Fracture [Unknown]
  - Gastroenteritis viral [Recovering/Resolving]
  - Contusion [Unknown]
  - Arthralgia [Unknown]
  - Back pain [Not Recovered/Not Resolved]
  - Night sweats [Unknown]
  - Fatigue [Unknown]
  - Injection site pain [Unknown]
  - Vomiting [Unknown]
  - Dysgeusia [Unknown]
